FAERS Safety Report 4886651-9 (Version None)
Quarter: 2006Q1

REPORT INFORMATION
  Report Type: 
  Country: None (occurrence: None)
  Receive Date: 20060119
  Receipt Date: 20060109
  Transmission Date: 20060701
  Serious: Yes (Death)
  Sender: FDA-Public Use
  Company Number: 2006EU000046

PATIENT
  Age: 63 Year
  Sex: Male

DRUGS (3)
  1. PROGRAF [Suspect]
     Indication: LUNG TRANSPLANT
  2. METHYLPREDNISOLONE [Concomitant]
  3. AZATHIOPRINE [Concomitant]

REACTIONS (20)
  - ASPERGILLOSIS [None]
  - BLOOD GLUCOSE INCREASED [None]
  - CARDIAC ARREST [None]
  - CARDIAC TAMPONADE [None]
  - CARDIOGENIC SHOCK [None]
  - DISSEMINATED CYTOMEGALOVIRAL INFECTION [None]
  - FUNGAL INFECTION [None]
  - GASTRITIS FUNGAL [None]
  - HAEMODYNAMIC INSTABILITY [None]
  - KIDNEY INFECTION [None]
  - PERICARDIAL EFFUSION [None]
  - PERICARDIAL HAEMORRHAGE [None]
  - PERICARDITIS INFECTIVE [None]
  - PLEURAL EFFUSION [None]
  - PLEUROPERICARDITIS [None]
  - PULMONARY MYCOSIS [None]
  - RENAL FAILURE ACUTE [None]
  - RESPIRATORY ARREST [None]
  - RESPIRATORY FAILURE [None]
  - THYROID DISORDER [None]
